FAERS Safety Report 22147780 (Version 1)
Quarter: 2023Q1

REPORT INFORMATION
  Report Type: Spontaneous
  Country: CA (occurrence: None)
  Receive Date: 20230328
  Receipt Date: 20230328
  Transmission Date: 20230417
  Serious: Yes (Life-Threatening, Hospitalization, Other)
  Sender: FDA-Public Use
  Company Number: 2023A070901

PATIENT
  Age: 64 Year
  Sex: Male
  Weight: 78 kg

DRUGS (9)
  1. BRILINTA [Suspect]
     Active Substance: TICAGRELOR
     Indication: Myocardial infarction
     Dosage: ONCE
     Route: 048
  2. ASPIRIN [Suspect]
     Active Substance: ASPIRIN
     Indication: Cardiovascular event prophylaxis
     Route: 048
  3. CAL-OS D [Concomitant]
  4. POLYETHYLENE GLYCOL 3350 [Concomitant]
     Active Substance: POLYETHYLENE GLYCOL 3350
  5. M-PANTOPRAZOLE [Concomitant]
  6. PMS-FERROUS SULFATE [Concomitant]
  7. RIVA-PERINDOPRIL [Concomitant]
  8. EZETIMIBE [Concomitant]
     Active Substance: EZETIMIBE
  9. ROSUVASTATIN [Concomitant]
     Active Substance: ROSUVASTATIN

REACTIONS (4)
  - Acute myocardial infarction [Recovered/Resolved]
  - Helicobacter test positive [Recovered/Resolved]
  - Ulcer [Recovered/Resolved]
  - Upper gastrointestinal haemorrhage [Recovered/Resolved]
